FAERS Safety Report 18464380 (Version 1)
Quarter: 2020Q4

REPORT INFORMATION
  Report Type: Spontaneous
  Country: FR (occurrence: FR)
  Receive Date: 20201104
  Receipt Date: 20201104
  Transmission Date: 20210114
  Serious: Yes (Other)
  Sender: FDA-Public Use
  Company Number: FR-MYLANLABS-2020M1091595

PATIENT
  Age: 15 Year
  Sex: Female
  Weight: 73.5 kg

DRUGS (2)
  1. IBUPROFEN. [Suspect]
     Active Substance: IBUPROFEN
     Indication: PRODUCT USED FOR UNKNOWN INDICATION
     Dosage: 20 TABLETS OF IBUPROFENE 400 MG AT ONE TIME
     Route: 048
     Dates: start: 20201008, end: 20201008
  2. LASILIX FAIBLE [Suspect]
     Active Substance: FUROSEMIDE
     Indication: PRODUCT USED FOR UNKNOWN INDICATION
     Dosage: MG AT ONE TIME LASILIX 20 MG
     Route: 048
     Dates: start: 20201008, end: 20201008

REACTIONS (3)
  - Abdominal pain [Recovered/Resolved]
  - Poisoning deliberate [Unknown]
  - Polyuria [Recovered/Resolved]

NARRATIVE: CASE EVENT DATE: 20201008
